FAERS Safety Report 17864592 (Version 2)
Quarter: 2020Q2

REPORT INFORMATION
  Report Type: Spontaneous
  Country: US (occurrence: US)
  Receive Date: 20200605
  Receipt Date: 20200616
  Transmission Date: 20200714
  Serious: No
  Sender: FDA-Public Use
  Company Number: US-VERTEX PHARMACEUTICALS-2020-012188

PATIENT
  Sex: Male

DRUGS (15)
  1. AZITHROMYCIN ANHYDROUS. [Concomitant]
     Active Substance: AZITHROMYCIN ANHYDROUS
     Dosage: 500 MG, THREE TIMES A WEEK (MONDAY, WEDNESDAY, FRIDAY)
     Route: 048
  2. DORNASE ALFA. [Concomitant]
     Active Substance: DORNASE ALFA
     Dosage: 2.5 MILLILITER, QD
     Route: 045
  3. IBUPROFEN. [Concomitant]
     Active Substance: IBUPROFEN
     Dosage: 1 DOSAGE FORM, TID
     Dates: start: 20191029, end: 20191030
  4. LANSOPRAZOLE. [Concomitant]
     Active Substance: LANSOPRAZOLE
     Dosage: 1 DOSAGE FORM, QD
     Route: 048
  5. CYPROHEPTADINE HCL [Concomitant]
     Active Substance: CYPROHEPTADINE HYDROCHLORIDE
     Dosage: 1 DOSAGE FORM, BID
     Route: 048
  6. PHYTONADIONE. [Concomitant]
     Active Substance: PHYTONADIONE
     Dosage: 5 MG, QD
     Route: 048
  7. AMYLASE/LIPASE/PROTEASE [Concomitant]
     Active Substance: AMYLASE\LIPASE\PROTEASE
     Dosage: 4 CAPSULES WITH 3 MEALS AND 2-3 CAPSULES WITH 3 SNACKS DAILY
     Route: 048
  8. SODIUM CHLORIDE. [Concomitant]
     Active Substance: SODIUM CHLORIDE
     Dosage: 4 MILLILITER, BID
  9. ALBUTEROL SULFATE HFA [Concomitant]
     Active Substance: ALBUTEROL SULFATE
     Indication: COUGH
     Dosage: 90 MICROGRAM/ ACTUATION
  10. ALBUTEROL SULFATE HFA [Concomitant]
     Active Substance: ALBUTEROL SULFATE
     Indication: WHEEZING
  11. TOBRAMYCIN. [Concomitant]
     Active Substance: TOBRAMYCIN
     Dosage: 112 MG, BID
  12. URSODIOL. [Concomitant]
     Active Substance: URSODIOL
     Dosage: 300 MG, BID
     Route: 048
  13. HYPERSAL [Concomitant]
     Active Substance: SODIUM CHLORIDE
  14. TRIKAFTA [Suspect]
     Active Substance: ELEXACAFTOR\IVACAFTOR\TEZACAFTOR
     Indication: CYSTIC FIBROSIS
     Dosage: 2 TABS 100 MG ELEXACAFTOR/ 50 MG TEZACAFTOR/ 75 MG IVACAFTOR, AM AND 1 TAB 150MG IVACAFTOR, PM
     Route: 048
     Dates: start: 202004
  15. IBUPROFEN. [Concomitant]
     Active Substance: IBUPROFEN
     Dosage: UNK, QID
     Dates: start: 20191030

REACTIONS (1)
  - Nausea [Recovered/Resolved]

NARRATIVE: CASE EVENT DATE: 2020
